FAERS Safety Report 7765739-9 (Version None)
Quarter: 2011Q3

REPORT INFORMATION
  Report Type: 
  Country: None (occurrence: None)
  Receive Date: 20110921
  Receipt Date: 20110402
  Transmission Date: 20111222
  Serious: No
  Sender: FDA-Public Use
  Company Number: US-BAYER-2011-070140

PATIENT
  Age: 7 Year
  Sex: Male
  Weight: 27 kg

DRUGS (2)
  1. HERBAL PREPARATION [Concomitant]
  2. ALEVE (CAPLET) [Suspect]
     Dosage: 1 CAPLET
     Route: 048

REACTIONS (1)
  - NO ADVERSE EVENT [None]
